FAERS Safety Report 4496289-3 (Version None)
Quarter: 2004Q4

REPORT INFORMATION
  Report Type: 
  Country: None (occurrence: None)
  Receive Date: 20041108
  Receipt Date: 20041108
  Transmission Date: 20050328
  Serious: No
  Sender: FDA-Public Use
  Company Number: None

PATIENT
  Age: 47 Year
  Sex: Female
  Weight: 81.1939 kg

DRUGS (2)
  1. LIPITOR [Suspect]
     Indication: BLOOD CHOLESTEROL INCREASED
     Dosage: 1/DAY    ORAL
     Route: 048
     Dates: start: 20020417, end: 20041027
  2. LIPITOR [Suspect]
     Indication: BLOOD TRIGLYCERIDES INCREASED
     Dosage: 1/DAY    ORAL
     Route: 048
     Dates: start: 20020417, end: 20041027

REACTIONS (6)
  - AMNESIA [None]
  - ASTHENIA [None]
  - DIFFICULTY IN WALKING [None]
  - MUSCLE CRAMP [None]
  - PAIN IN EXTREMITY [None]
  - VISUAL DISTURBANCE [None]
